FAERS Safety Report 23756667 (Version 2)
Quarter: 2025Q1

REPORT INFORMATION
  Report Type: Report from Study
  Country: CA (occurrence: CA)
  Receive Date: 20240418
  Receipt Date: 20250109
  Transmission Date: 20250408
  Serious: Yes (Other)
  Sender: SANDOZ
  Company Number: CA-002147023-NVSC2021CA255190

PATIENT
  Sex: Female

DRUGS (4)
  1. HYRIMOZ [Suspect]
     Active Substance: ADALIMUMAB-ADAZ
     Indication: Crohn^s disease
     Dosage: 40 MG, QW
     Route: 058
     Dates: start: 20210611
  2. HYRIMOZ [Suspect]
     Active Substance: ADALIMUMAB-ADAZ
     Route: 058
     Dates: start: 20211101
  3. METHOTREXATE [Suspect]
     Active Substance: METHOTREXATE
     Indication: Product used for unknown indication
     Route: 065
  4. METHOTREXATE [Suspect]
     Active Substance: METHOTREXATE
     Route: 065

REACTIONS (18)
  - Uveitis [Unknown]
  - Erythema nodosum [Unknown]
  - Feeling abnormal [Unknown]
  - Abdominal distension [Unknown]
  - Impaired work ability [Unknown]
  - Pain [Unknown]
  - Condition aggravated [Unknown]
  - General physical health deterioration [Recovering/Resolving]
  - Fatigue [Unknown]
  - Rash papular [Unknown]
  - Diarrhoea [Unknown]
  - Anxiety [Unknown]
  - Stress [Unknown]
  - Nausea [Unknown]
  - Abdominal pain [Unknown]
  - Asthenia [Unknown]
  - Disease progression [Unknown]
  - Off label use [Unknown]
